FAERS Safety Report 13910573 (Version 1)
Quarter: 2017Q3

REPORT INFORMATION
  Report Type: Spontaneous
  Country: GB (occurrence: None)
  Receive Date: 20170825
  Receipt Date: 20170825
  Transmission Date: 20171127
  Serious: Yes (Other)
  Sender: FDA-Public Use
  Company Number: None

PATIENT
  Age: 30 Year
  Sex: Female
  Weight: 75 kg

DRUGS (1)
  1. MIRENA [Suspect]
     Active Substance: LEVONORGESTREL
     Indication: CONTRACEPTION

REACTIONS (8)
  - Pain in extremity [None]
  - Alopecia [None]
  - Depression [None]
  - Carpal tunnel syndrome [None]
  - Hypoaesthesia [None]
  - Anxiety [None]
  - Anger [None]
  - Middle insomnia [None]
